FAERS Safety Report 5005778-4 (Version None)
Quarter: 2006Q2

REPORT INFORMATION
  Report Type: 
  Country: None (occurrence: None)
  Receive Date: 20060516
  Receipt Date: 20060508
  Transmission Date: 20061013
  Serious: Yes (Death)
  Sender: FDA-Public Use
  Company Number: US200604002740

PATIENT
  Age: 80 Year
  Sex: Male

DRUGS (2)
  1. ZYPREXA [Suspect]
     Indication: MAJOR DEPRESSION
     Dosage: 10 MG, ORAL
     Route: 048
     Dates: start: 19980401, end: 20030901
  2. WELLBUTRIN [Concomitant]

REACTIONS (4)
  - INCREASED APPETITE [None]
  - SEPSIS [None]
  - TOOTH ABSCESS [None]
  - WEIGHT INCREASED [None]
